FAERS Safety Report 5695456-0 (Version None)
Quarter: 2008Q2

REPORT INFORMATION
  Report Type: 
  Country: None (occurrence: None)
  Receive Date: 20080403
  Receipt Date: 20080324
  Transmission Date: 20081010
  Serious: Yes (Life-Threatening)
  Sender: FDA-Public Use
  Company Number: 20084775

PATIENT
  Sex: Male

DRUGS (1)
  1. LIORESAL [Suspect]
     Indication: MUSCLE SPASTICITY
     Dosage: /MCG, DAILY, INTRATHECAL
     Route: 037

REACTIONS (11)
  - BLOODY DISCHARGE [None]
  - DEVICE RELATED INFECTION [None]
  - DIALYSIS [None]
  - HYPERTONIA [None]
  - MEDICAL DEVICE SITE REACTION [None]
  - PAIN [None]
  - PNEUMONIA [None]
  - RENAL FAILURE [None]
  - SEPSIS [None]
  - SKIN DISCOLOURATION [None]
  - WITHDRAWAL SYNDROME [None]
